FAERS Safety Report 21898284 (Version 1)
Quarter: 2023Q1

REPORT INFORMATION
  Report Type: Spontaneous
  Country: US (occurrence: None)
  Receive Date: 20230121
  Receipt Date: 20230121
  Transmission Date: 20230418
  Serious: Yes (Hospitalization)
  Sender: FDA-Public Use
  Company Number: None

PATIENT
  Age: 28 Year
  Sex: Male
  Weight: 74.2 kg

DRUGS (4)
  1. CISPLATIN [Suspect]
     Active Substance: CISPLATIN
     Dates: end: 20221231
  2. FILGRASTIM [Suspect]
     Active Substance: FILGRASTIM
  3. IFOSFAMIDE [Suspect]
     Active Substance: IFOSFAMIDE
     Dates: end: 20221231
  4. TAXOL [Suspect]
     Active Substance: PACLITAXEL
     Dates: end: 20221230

REACTIONS (8)
  - Mucosal inflammation [None]
  - Cough [None]
  - Ear infection [None]
  - Pyrexia [None]
  - Tachycardia [None]
  - Febrile neutropenia [None]
  - Haemoglobin abnormal [None]
  - Platelet disorder [None]

NARRATIVE: CASE EVENT DATE: 20230113
